FAERS Safety Report 7339565-9 (Version None)
Quarter: 2011Q1

REPORT INFORMATION
  Report Type: 
  Country: None (occurrence: None)
  Receive Date: 20110308
  Receipt Date: 20110222
  Transmission Date: 20110831
  Serious: No
  Sender: FDA-Public Use
  Company Number: US-AMGEN-USASP2011007575

PATIENT
  Age: 53 Year
  Sex: Female
  Weight: 62.585 kg

DRUGS (3)
  1. FORTEO [Concomitant]
  2. PROLIA [Suspect]
     Indication: OSTEOPOROSIS POSTMENOPAUSAL
     Dosage: 60 MG, Q6MO
     Dates: start: 20110120
  3. RECLAST [Concomitant]

REACTIONS (2)
  - CONSTIPATION [None]
  - PAIN IN EXTREMITY [None]
